FAERS Safety Report 10444140 (Version 1)
Quarter: 2014Q3

REPORT INFORMATION
  Report Type: Spontaneous
  Country: US (occurrence: None)
  Receive Date: 20140909
  Receipt Date: 20140909
  Transmission Date: 20150326
  Serious: Yes (Life-Threatening)
  Sender: FDA-Public Use
  Company Number: None

PATIENT
  Age: 60 Year
  Sex: Male
  Weight: 105.9 kg

DRUGS (1)
  1. VANCOMYCIN [Suspect]
     Active Substance: VANCOMYCIN
     Indication: CELLULITIS
     Dosage: 1000 MG ONCE IV
     Route: 042
     Dates: start: 20140904, end: 20140904

REACTIONS (5)
  - Injection site erythema [None]
  - Tachycardia [None]
  - Dyspnoea [None]
  - Cyanosis [None]
  - Tachypnoea [None]

NARRATIVE: CASE EVENT DATE: 20140904
